FAERS Safety Report 20350255 (Version 1)
Quarter: 2022Q1

REPORT INFORMATION
  Report Type: Spontaneous
  Country: US (occurrence: None)
  Receive Date: 20220117
  Receipt Date: 20220117
  Transmission Date: 20220423
  Serious: Yes (Life-Threatening, Hospitalization)
  Sender: FDA-Public Use
  Company Number: None

PATIENT
  Age: 17 Year
  Sex: Male
  Weight: 81 kg

DRUGS (1)
  1. .DELTA.8-TETRAHYDROCANNABINOL\HERBALS [Suspect]
     Active Substance: .DELTA.8-TETRAHYDROCANNABINOL\HERBALS
     Indication: Product used for unknown indication
     Dosage: OTHER QUANTITY : 2 GUMMY;?
     Dates: start: 20220116, end: 20220116

REACTIONS (5)
  - Hallucination [None]
  - Screaming [None]
  - Heart rate increased [None]
  - Feeling abnormal [None]
  - Memory impairment [None]

NARRATIVE: CASE EVENT DATE: 20220116
